FAERS Safety Report 7439339-4 (Version None)
Quarter: 2011Q2

REPORT INFORMATION
  Report Type: 
  Country: None (occurrence: None)
  Receive Date: 20110427
  Receipt Date: 20110421
  Transmission Date: 20111010
  Serious: No
  Sender: FDA-Public Use
  Company Number: US-PFIZER INC-2011087362

PATIENT
  Sex: Male

DRUGS (2)
  1. PROTONIX [Suspect]
     Dosage: 40 MG, UNK
  2. PANTOPRAZOLE SODIUM [Suspect]
     Dosage: UNK

REACTIONS (3)
  - MALAISE [None]
  - DRUG INEFFECTIVE [None]
  - NAUSEA [None]
